FAERS Safety Report 10095480 (Version 1)
Quarter: 2014Q2

REPORT INFORMATION
  Report Type: Report from Study
  Country: US (occurrence: US)
  Receive Date: 20140422
  Receipt Date: 20140422
  Transmission Date: 20141212
  Serious: Yes (Other)
  Sender: FDA-Public Use
  Company Number: US-PFIZER INC-2014110282

PATIENT
  Age: 69 Year
  Sex: Male
  Weight: 119 kg

DRUGS (16)
  1. SOLU-MEDROL [Suspect]
     Indication: MULTIPLE SCLEROSIS
     Dosage: UNK
  2. AMPYRA [Suspect]
     Indication: GAIT DISTURBANCE
     Dosage: 10 MG, Q 12HR
     Route: 048
     Dates: start: 2011, end: 201312
  3. AMPYRA [Suspect]
     Indication: MULTIPLE SCLEROSIS
     Dosage: 10 MG, 1X/DAY
     Route: 048
     Dates: start: 201312, end: 201401
  4. AMPYRA [Suspect]
     Dosage: UNK
     Dates: start: 2014
  5. METHOTREXATE SODIUM [Concomitant]
     Dosage: 2.5 MG, 3 TABLETS WEEKLY ON MONDAY
  6. LOSARTAN POTASSIUM [Concomitant]
     Dosage: UNK
  7. ATORVASTATIN CALCIUM [Concomitant]
     Dosage: 40 MG, AT BEDTIME
  8. FOLIC ACID [Concomitant]
     Dosage: 1 MG, DAILY
  9. ASPIRIN [Concomitant]
     Dosage: UNK
  10. FISH OIL [Concomitant]
     Dosage: 1200 MG, DAILY
  11. COQ 10 [Concomitant]
     Dosage: 200 MG, DAILY
  12. HYDROCHLOROTHIAZIDE/LOSARTAN [Concomitant]
     Dosage: 12.5MG/100 MG DAILY
  13. ALEVE [Concomitant]
     Dosage: 220 MG, TWICE DAILY AS NEEDED
  14. DULCOLAX [Concomitant]
     Dosage: UNK
  15. METFORMIN [Concomitant]
     Indication: BLOOD GLUCOSE INCREASED
     Dosage: UNK
  16. METFORMIN [Concomitant]
     Indication: DIABETES MELLITUS

REACTIONS (8)
  - Blood glucose increased [Not Recovered/Not Resolved]
  - Diabetes mellitus [Not Recovered/Not Resolved]
  - Multiple sclerosis relapse [Recovered/Resolved]
  - Hemiparesis [Not Recovered/Not Resolved]
  - Muscular weakness [Not Recovered/Not Resolved]
  - Gait disturbance [Not Recovered/Not Resolved]
  - Fatigue [Not Recovered/Not Resolved]
  - Insomnia [Not Recovered/Not Resolved]
